FAERS Safety Report 21986531 (Version 1)
Quarter: 2023Q1

REPORT INFORMATION
  Report Type: Spontaneous
  Country: US (occurrence: None)
  Receive Date: 20230210
  Receipt Date: 20230210
  Transmission Date: 20230417
  Serious: Yes (Hospitalization)
  Sender: FDA-Public Use
  Company Number: None

PATIENT
  Sex: Male
  Weight: 95.25 kg

DRUGS (20)
  1. BOSULIF [Suspect]
     Active Substance: BOSUTINIB MONOHYDRATE
     Indication: Chronic myeloid leukaemia
     Dosage: FREQUENCY : DAILY;?
     Route: 048
  2. RETACRIT [Suspect]
     Active Substance: EPOETIN ALFA-EPBX
  3. ACETAMINOPHEN\HYDROCODONE [Concomitant]
     Active Substance: ACETAMINOPHEN\HYDROCODONE
  4. METOCLOPRAMIDE [Concomitant]
     Active Substance: METOCLOPRAMIDE
  5. GLIPIZIDE [Concomitant]
     Active Substance: GLIPIZIDE
  6. LOSARTAN [Concomitant]
     Active Substance: LOSARTAN
  7. MELATONIN [Concomitant]
     Active Substance: MELATONIN
  8. XANAX [Concomitant]
     Active Substance: ALPRAZOLAM
  9. ASPIRIN [Concomitant]
     Active Substance: ASPIRIN
  10. PREDNISONE [Concomitant]
     Active Substance: PREDNISONE
  11. LASIX [Concomitant]
     Active Substance: FUROSEMIDE
  12. ZANAFLEX [Concomitant]
     Active Substance: TIZANIDINE HYDROCHLORIDE
  13. BRILINTA [Concomitant]
     Active Substance: TICAGRELOR
  14. ATORVASTATIN [Concomitant]
     Active Substance: ATORVASTATIN
  15. METOPROLOL [Concomitant]
     Active Substance: METOPROLOL
  16. LOKELMA [Concomitant]
     Active Substance: SODIUM ZIRCONIUM CYCLOSILICATE
  17. IRON [Concomitant]
     Active Substance: IRON
  18. PEPTO-BISMOL [Concomitant]
     Active Substance: BISMUTH SUBSALICYLATE
  19. FAMOTIDINE [Concomitant]
     Active Substance: FAMOTIDINE
  20. PURE BAKING SODA [Concomitant]
     Active Substance: SODIUM BICARBONATE

REACTIONS (1)
  - Pancreatitis [None]
